FAERS Safety Report 25292486 (Version 1)
Quarter: 2025Q2

REPORT INFORMATION
  Report Type: Spontaneous
  Country: US (occurrence: US)
  Receive Date: 20250510
  Receipt Date: 20250510
  Transmission Date: 20250717
  Serious: No
  Sender: SANOFI AVENTIS
  Company Number: US-SA-2025SA124869

PATIENT
  Sex: Male

DRUGS (11)
  1. DUPIXENT [Suspect]
     Active Substance: DUPILUMAB
     Indication: Asthma
     Dosage: 300 MG, QOW
     Route: 058
  2. ALBUTEROL SULFATE [Concomitant]
     Active Substance: ALBUTEROL SULFATE
  3. CARVEDILOL [Concomitant]
     Active Substance: CARVEDILOL
  4. DIGOXIN [Concomitant]
     Active Substance: DIGOXIN
  5. PHENAZOPYRIDINE [Concomitant]
     Active Substance: PHENAZOPYRIDINE
  6. REPATHA [Concomitant]
     Active Substance: EVOLOCUMAB
  7. SPIRONOLACTONE [Concomitant]
     Active Substance: SPIRONOLACTONE
  8. TAMSULOSIN [Concomitant]
     Active Substance: TAMSULOSIN
  9. TORSEMIDE [Concomitant]
     Active Substance: TORSEMIDE
  10. TRELEGY ELLIPTA [Concomitant]
     Active Substance: FLUTICASONE FUROATE\UMECLIDINIUM BROMIDE\VILANTEROL TRIFENATATE
  11. WARFARIN SODIUM [Concomitant]
     Active Substance: WARFARIN SODIUM

REACTIONS (2)
  - Cough [Unknown]
  - Peripheral swelling [Unknown]
